FAERS Safety Report 6743617-1 (Version None)
Quarter: 2010Q2

REPORT INFORMATION
  Report Type: 
  Country: None (occurrence: None)
  Receive Date: 20100527
  Receipt Date: 20100527
  Transmission Date: 20101027
  Serious: Yes (Other)
  Sender: FDA-Public Use
  Company Number: None

PATIENT
  Sex: Male
  Weight: 11.4 kg

DRUGS (2)
  1. TYLENOL 1.6 ML 2-3X'S DAILY 047 [Suspect]
     Indication: EAR INFECTION
     Dosage: 1.6 ML 2-3X'S DAILY, ORAL
     Route: 048
     Dates: start: 20100428
  2. TYLENOL 1.6 ML 2-3X'S DAILY 047 [Suspect]
     Indication: PYREXIA
     Dosage: 1.6 ML 2-3X'S DAILY, ORAL
     Route: 048
     Dates: start: 20100428

REACTIONS (4)
  - COUGH [None]
  - PRODUCT QUALITY ISSUE [None]
  - RASH GENERALISED [None]
  - WHEEZING [None]
